FAERS Safety Report 22033038 (Version 1)
Quarter: 2023Q1

REPORT INFORMATION
  Report Type: Spontaneous
  Country: FI (occurrence: FI)
  Receive Date: 20230224
  Receipt Date: 20230224
  Transmission Date: 20230418
  Serious: Yes (Other)
  Sender: FDA-Public Use
  Company Number: FI-STRIDES ARCOLAB LIMITED-2023SP002591

PATIENT
  Age: 39 Year
  Sex: Female

DRUGS (12)
  1. DISULFIRAM [Interacting]
     Active Substance: DISULFIRAM
     Indication: Alcohol use disorder
     Dosage: 200 MILLIGRAM (PER DAY)
     Route: 065
  2. DISULFIRAM [Interacting]
     Active Substance: DISULFIRAM
     Dosage: 200 MILLIGRAM (PER DAY) (RESTARTED)
     Route: 065
  3. CLOZAPINE [Interacting]
     Active Substance: CLOZAPINE
     Indication: Schizophrenia
     Dosage: 425 MILLIGRAM (PER DAY)
     Route: 065
     Dates: start: 201905
  4. CLOZAPINE [Interacting]
     Active Substance: CLOZAPINE
     Dosage: 475 MILLIGRAM (PER DAY)
     Route: 065
  5. VALPROATE [Concomitant]
     Active Substance: VALPROIC ACID
     Indication: Epilepsy
     Dosage: 2000 MILLIGRAM (PER DAY) (FOR OVER 10 YEARS)
     Route: 065
  6. BISOPROLOL [Concomitant]
     Active Substance: BISOPROLOL
     Indication: Product used for unknown indication
     Dosage: 2.5 MILLIGRAM (PER DAY)
     Route: 065
  7. CLOBAZAM [Concomitant]
     Active Substance: CLOBAZAM
     Indication: Product used for unknown indication
     Dosage: 20 MILLIGRAM (PER DAY)
     Route: 065
  8. PERPHENAZINE DECANOATE [Concomitant]
     Active Substance: PERPHENAZINE DECANOATE
     Indication: Product used for unknown indication
     Dosage: 108 MILLIGRAM (PER 2 WEEK) (LONG-ACTING INJECTABLE)
     Route: 065
  9. VITAMINS [Concomitant]
     Active Substance: VITAMINS
     Indication: Vitamin supplementation
     Dosage: UNK
     Route: 065
  10. MAGNESIUM [Concomitant]
     Active Substance: MAGNESIUM
     Indication: Product used for unknown indication
     Dosage: UNK
     Route: 065
  11. PROPRANOLOL [Concomitant]
     Active Substance: PROPRANOLOL HYDROCHLORIDE
     Indication: Product used for unknown indication
     Dosage: UNK
     Route: 065
  12. CETIRIZINE [Concomitant]
     Active Substance: CETIRIZINE HYDROCHLORIDE
     Indication: Hypersensitivity
     Dosage: UNK
     Route: 065

REACTIONS (2)
  - Antipsychotic drug level increased [Recovered/Resolved]
  - Drug interaction [Unknown]
